FAERS Safety Report 13886105 (Version 2)
Quarter: 2017Q3

REPORT INFORMATION
  Report Type: Report from Study
  Country: CO (occurrence: CO)
  Receive Date: 20170821
  Receipt Date: 20170901
  Transmission Date: 20171127
  Serious: Yes (Other)
  Sender: FDA-Public Use
  Company Number: PHHY2017CO120964

PATIENT
  Age: 83 Year
  Sex: Male

DRUGS (2)
  1. ENTRESTO [Suspect]
     Active Substance: SACUBITRIL\VALSARTAN
     Indication: CARDIAC FAILURE
     Dosage: 200 MG, QD
     Route: 048
     Dates: start: 20170130
  2. ENTRESTO [Suspect]
     Active Substance: SACUBITRIL\VALSARTAN
     Dosage: 50 MG, QD (SPLITS 200 MG TABLET TO TAKE 50 MG 1 DAILY)
     Route: 048
     Dates: start: 20170823

REACTIONS (6)
  - Gastric cancer [Unknown]
  - Prescribed underdose [Unknown]
  - Drug prescribing error [Unknown]
  - Pneumonia [Unknown]
  - Wrong technique in product usage process [Unknown]
  - Inappropriate schedule of drug administration [Unknown]

NARRATIVE: CASE EVENT DATE: 20170130
